FAERS Safety Report 5092306-0 (Version None)
Quarter: 2006Q3

REPORT INFORMATION
  Report Type: 
  Country: None (occurrence: None)
  Receive Date: 20060825
  Receipt Date: 20060807
  Transmission Date: 20061208
  Serious: Yes (Hospitalization, Other)
  Sender: FDA-Public Use
  Company Number: US200603000946

PATIENT
  Age: 54 Year
  Sex: Female
  Weight: 112.5 kg

DRUGS (3)
  1. ZYPREXA [Suspect]
     Indication: DEPRESSION
     Dosage: SEE IMAGE
     Route: 048
     Dates: start: 20020201, end: 20031201
  2. ZYPREXA [Suspect]
     Indication: DEPRESSION
     Dosage: SEE IMAGE
     Route: 048
     Dates: start: 20020201, end: 20031201
  3. ATENOLOL [Concomitant]

REACTIONS (15)
  - BILIARY TRACT DISORDER [None]
  - BLOOD CHOLESTEROL ABNORMAL [None]
  - BLOOD TRIGLYCERIDES INCREASED [None]
  - BRAIN NEOPLASM [None]
  - CHEST PAIN [None]
  - CHOLELITHIASIS [None]
  - DIABETES MELLITUS NON-INSULIN-DEPENDENT [None]
  - GALLBLADDER DISORDER [None]
  - HYPERTENSION [None]
  - MENTAL DISORDER [None]
  - METABOLIC DISORDER [None]
  - NERVOUS SYSTEM DISORDER [None]
  - OBESITY [None]
  - TRANSPLANT [None]
  - WEIGHT DECREASED [None]
